FAERS Safety Report 13537554 (Version 4)
Quarter: 2017Q2

REPORT INFORMATION
  Report Type: Spontaneous
  Country: LV (occurrence: LV)
  Receive Date: 20170511
  Receipt Date: 20170608
  Transmission Date: 20170830
  Serious: No
  Sender: FDA-Public Use
  Company Number: PHHY2017LV051014

PATIENT
  Sex: Female

DRUGS (2)
  1. EXTAVIA [Suspect]
     Active Substance: INTERFERON BETA-1B
     Indication: MULTIPLE SCLEROSIS
     Dosage: UNK
     Route: 058
     Dates: start: 20170331
  2. EXTAVIA [Suspect]
     Active Substance: INTERFERON BETA-1B
     Dosage: 0.75 ML, UNK
     Route: 058
     Dates: start: 20170528

REACTIONS (7)
  - Disturbance in attention [Not Recovered/Not Resolved]
  - Abdominal pain upper [Not Recovered/Not Resolved]
  - Chronic gastritis [Unknown]
  - Application site bruise [Recovering/Resolving]
  - Liver disorder [Recovering/Resolving]
  - Decreased activity [Unknown]
  - Gastric disorder [Recovering/Resolving]

NARRATIVE: CASE EVENT DATE: 20170331
